FAERS Safety Report 16981900 (Version 1)
Quarter: 2019Q4

REPORT INFORMATION
  Report Type: Spontaneous
  Country: US (occurrence: US)
  Receive Date: 20191101
  Receipt Date: 20191101
  Transmission Date: 20200122
  Serious: No
  Sender: FDA-Public Use
  Company Number: US-AMGEN-USASP2019176205

PATIENT
  Sex: Female

DRUGS (4)
  1. BABY ASPIRIN [Concomitant]
     Active Substance: ASPIRIN
  2. REPATHA [Suspect]
     Active Substance: EVOLOCUMAB
     Indication: BLOOD CHOLESTEROL ABNORMAL
     Dosage: 140 MILLIGRAM
     Route: 065
     Dates: start: 201902
  3. METOPROLOL. [Concomitant]
     Active Substance: METOPROLOL
  4. BRILINTA [Concomitant]
     Active Substance: TICAGRELOR

REACTIONS (3)
  - Blood glucose increased [Unknown]
  - Injection site urticaria [Unknown]
  - Injection site bruising [Unknown]
